FAERS Safety Report 8613611-4 (Version None)
Quarter: 2012Q3

REPORT INFORMATION
  Report Type: 
  Country: None (occurrence: None)
  Receive Date: 20120823
  Receipt Date: 20120809
  Transmission Date: 20120928
  Serious: Yes (Hospitalization, Disabling, Other)
  Sender: FDA-Public Use
  Company Number: US-009507513-1205USA02888

PATIENT

DRUGS (4)
  1. ALENDRONATE SODIUM [Suspect]
     Dosage: 70 MG, UNK
     Dates: start: 20080919
  2. FOSAMAX [Suspect]
     Indication: OSTEOPENIA
     Dosage: UNK MG, UNK
     Route: 048
     Dates: start: 19950101, end: 20090712
  3. FOSAMAX [Suspect]
     Dosage: 70 UNK, UNK
     Dates: start: 20010726
  4. FOSAMAX [Suspect]
     Dosage: 70 MG, UNK
     Route: 048
     Dates: start: 20080227, end: 20100310

REACTIONS (13)
  - ADVERSE EVENT [None]
  - FALL [None]
  - STRESS FRACTURE [None]
  - FEMUR FRACTURE [None]
  - JOINT SURGERY [None]
  - SURGERY [None]
  - BLOOD CHOLESTEROL INCREASED [None]
  - OSTEOPOROSIS [None]
  - TOOTH DISORDER [None]
  - MEDICAL DEVICE REMOVAL [None]
  - BONE DENSITY DECREASED [None]
  - OSTEOARTHRITIS [None]
  - BONE DISORDER [None]
